FAERS Safety Report 14842287 (Version 1)
Quarter: 2018Q2

REPORT INFORMATION
  Report Type: Spontaneous
  Country: US (occurrence: US)
  Receive Date: 20180503
  Receipt Date: 20180503
  Transmission Date: 20180711
  Serious: No
  Sender: FDA-Public Use
  Company Number: US-BAYER-2018-083328

PATIENT
  Sex: Female

DRUGS (1)
  1. CLIMARA PRO [Suspect]
     Active Substance: ESTRADIOL\LEVONORGESTREL
     Dosage: UNK
     Route: 062

REACTIONS (5)
  - Product physical issue [None]
  - Application site pruritus [None]
  - Application site pain [None]
  - Application site erythema [None]
  - Wrong technique in product usage process [None]

NARRATIVE: CASE EVENT DATE: 201606
